FAERS Safety Report 15487131 (Version 3)
Quarter: 2018Q4

REPORT INFORMATION
  Report Type: Report from Study
  Country: AU (occurrence: AU)
  Receive Date: 20181011
  Receipt Date: 20181217
  Transmission Date: 20190205
  Serious: Yes (Other)
  Sender: FDA-Public Use
  Company Number: AU-EMD SERONO-9040333

PATIENT
  Age: 66 Year
  Sex: Male
  Weight: 85 kg

DRUGS (21)
  1. MAGNESIUM [Concomitant]
     Active Substance: MAGNESIUM
     Indication: GENERAL PHYSICAL CONDITION
     Dates: start: 2016
  2. BACTRIM DS [Concomitant]
     Active Substance: SULFAMETHOXAZOLE\TRIMETHOPRIM
     Indication: PROPHYLAXIS
     Dosage: 800/160 MG
     Dates: start: 20180718
  3. PARACETAMOL W/PSEUDOEPHEDRINE HYDROCHLORIDE/T [Concomitant]
     Indication: PHARYNGITIS STREPTOCOCCAL
     Dosage: 30 MG, 1 TABLET, 500 MG ORAL, 1.25 MG AS REQUIRED
     Route: 048
     Dates: start: 20180801
  4. NEXIUM [Concomitant]
     Active Substance: ESOMEPRAZOLE MAGNESIUM
     Indication: GASTROOESOPHAGEAL REFLUX DISEASE
     Dates: start: 2008
  5. ALLOPURINOL. [Concomitant]
     Active Substance: ALLOPURINOL
     Indication: PROPHYLAXIS
     Dates: start: 20180718
  6. ONDANSETRON [Concomitant]
     Active Substance: ONDANSETRON
     Indication: NAUSEA
     Dates: start: 20180919
  7. RITUXIMAB. [Suspect]
     Active Substance: RITUXIMAB
     Indication: DIFFUSE LARGE B-CELL LYMPHOMA
     Route: 042
     Dates: start: 20180718
  8. MAXOLON [Concomitant]
     Active Substance: METOCLOPRAMIDE HYDROCHLORIDE
     Indication: NAUSEA
     Dates: start: 20180718
  9. MACROGOL [Concomitant]
     Active Substance: POLYETHYLENE GLYCOLS
     Indication: CONSTIPATION
     Dosage: 1 SACHET
     Route: 048
     Dates: start: 20180823
  10. KENACOMB [Concomitant]
     Indication: PRURITUS
     Dosage: 1 APPLICATION
     Route: 061
     Dates: start: 1990
  11. COENZYME Q10 [Concomitant]
     Active Substance: UBIDECARENONE
     Indication: GENERAL PHYSICAL CONDITION
     Dates: start: 2016
  12. METOPROLOL. [Concomitant]
     Active Substance: METOPROLOL
     Indication: ATRIAL FIBRILLATION
     Route: 048
     Dates: start: 20180823
  13. FAMCICLOVIR. [Concomitant]
     Active Substance: FAMCICLOVIR
     Indication: PROPHYLAXIS
     Dates: start: 2013
  14. GREEN-LIPPED MUSSEL EXTRACT [Concomitant]
     Indication: GENERAL PHYSICAL CONDITION
     Dates: start: 2016
  15. PARACETAMOL W/PSEUDOEPHEDRINE HYDROCHLORIDE/T [Concomitant]
     Indication: LOWER RESPIRATORY TRACT CONGESTION
  16. APIXABAN [Concomitant]
     Active Substance: APIXABAN
     Indication: ATRIAL FIBRILLATION
     Route: 048
     Dates: start: 20180823
  17. OLANZAPINE. [Concomitant]
     Active Substance: OLANZAPINE
     Indication: PROPHYLAXIS
     Dates: start: 20180926
  18. CETIRIZINE [Concomitant]
     Active Substance: CETIRIZINE HYDROCHLORIDE
     Indication: RASH
     Route: 048
     Dates: start: 20180801
  19. AVELUMAB [Suspect]
     Active Substance: AVELUMAB
     Indication: DIFFUSE LARGE B-CELL LYMPHOMA
     Route: 042
     Dates: start: 20180718, end: 20180802
  20. PROCHLORPERAZINE MALEATE. [Concomitant]
     Active Substance: PROCHLORPERAZINE MALEATE
     Indication: VERTIGO
     Route: 048
     Dates: start: 2003
  21. LORATADINE. [Concomitant]
     Active Substance: LORATADINE
     Indication: RASH
     Dates: start: 20180809

REACTIONS (1)
  - Liver function test increased [Recovered/Resolved]

NARRATIVE: CASE EVENT DATE: 20180815
